FAERS Safety Report 13239632 (Version 1)
Quarter: 2017Q1

REPORT INFORMATION
  Report Type: Spontaneous
  Country: US (occurrence: US)
  Receive Date: 20170216
  Receipt Date: 20170216
  Transmission Date: 20170428
  Serious: No
  Sender: FDA-Public Use
  Company Number: US-RELYPSA-RLY2016003371

PATIENT
  Sex: Male

DRUGS (13)
  1. VELTASSA [Suspect]
     Active Substance: PATIROMER
     Indication: HYPERKALAEMIA
     Dosage: 16.8 G, QD
     Route: 048
     Dates: start: 20160318
  2. VITAMIN C [Concomitant]
     Active Substance: ASCORBIC ACID
  3. SODIUM BICARBONATE. [Concomitant]
     Active Substance: SODIUM BICARBONATE
  4. LISINOPRIL. [Concomitant]
     Active Substance: LISINOPRIL
  5. EPOGEN [Concomitant]
     Active Substance: ERYTHROPOIETIN
  6. CALCIUM ACETATE. [Concomitant]
     Active Substance: CALCIUM ACETATE
  7. RENVELA [Concomitant]
     Active Substance: SEVELAMER CARBONATE
  8. IRON [Concomitant]
     Active Substance: IRON
  9. FUROSEMIDE. [Concomitant]
     Active Substance: FUROSEMIDE
  10. ALLOPURINOL. [Concomitant]
     Active Substance: ALLOPURINOL
  11. ATENOLOL. [Concomitant]
     Active Substance: ATENOLOL
  12. ASPIRIN. [Concomitant]
     Active Substance: ASPIRIN
  13. PRAVASTATIN SODIUM. [Concomitant]
     Active Substance: PRAVASTATIN SODIUM

REACTIONS (1)
  - Carbon dioxide decreased [Unknown]

NARRATIVE: CASE EVENT DATE: 2016
